FAERS Safety Report 7901661-2 (Version None)
Quarter: 2011Q4

REPORT INFORMATION
  Report Type: 
  Country: None (occurrence: None)
  Receive Date: 20111108
  Receipt Date: 20111102
  Transmission Date: 20120403
  Serious: Yes (Hospitalization, Other)
  Sender: FDA-Public Use
  Company Number: KP-ROCHE-GNE324172

PATIENT
  Sex: Female

DRUGS (1)
  1. RANIBIZUMAB [Suspect]
     Indication: AGE-RELATED MACULAR DEGENERATION
     Dosage: 0.5 MG, UNKNOWN
     Route: 050
     Dates: start: 20091216, end: 20091216

REACTIONS (1)
  - VITREOUS HAEMORRHAGE [None]
